FAERS Safety Report 13857838 (Version 2)
Quarter: 2017Q3

REPORT INFORMATION
  Report Type: Report from Study
  Country: US (occurrence: US)
  Receive Date: 20170811
  Receipt Date: 20170922
  Transmission Date: 20171127
  Serious: Yes (Other)
  Sender: FDA-Public Use
  Company Number: PHEH2017US024846

PATIENT
  Age: 50 Year
  Sex: Female

DRUGS (1)
  1. RYDAPT [Suspect]
     Active Substance: MIDOSTAURIN
     Indication: NEOPLASM MALIGNANT
     Dosage: 25 MG, BID
     Route: 048
     Dates: start: 20170724, end: 20170728

REACTIONS (3)
  - Salivary hypersecretion [Unknown]
  - Heart rate irregular [Unknown]
  - Muscle spasms [Unknown]

NARRATIVE: CASE EVENT DATE: 20170728
